FAERS Safety Report 14730637 (Version 1)
Quarter: 2018Q2

REPORT INFORMATION
  Report Type: Spontaneous
  Country: US (occurrence: US)
  Receive Date: 20180402
  Receipt Date: 20180402
  Transmission Date: 20180711
  Serious: No
  Sender: FDA-Public Use
  Company Number: None

PATIENT
  Sex: Male

DRUGS (1)
  1. SUTENT [Suspect]
     Active Substance: SUNITINIB MALATE
     Indication: BRAIN NEOPLASM MALIGNANT
     Dosage: 50MG DAILY  FOR 4 WEEKS ON,?  THEN 2 WEEKS OFF           PO?
     Route: 048
     Dates: start: 201801

REACTIONS (1)
  - Dry skin [None]
